FAERS Safety Report 11547160 (Version 2)
Quarter: 2015Q3

REPORT INFORMATION
  Report Type: Report from Study
  Country: AU (occurrence: AU)
  Receive Date: 20150924
  Receipt Date: 20150928
  Transmission Date: 20151125
  Serious: Yes (Death, Hospitalization, Other)
  Sender: FDA-Public Use
  Company Number: PHHY2015AU113542

PATIENT
  Age: 42 Year
  Sex: Male

DRUGS (1)
  1. CLOZARIL [Suspect]
     Active Substance: CLOZAPINE
     Indication: SCHIZOPHRENIA
     Dosage: 400 OT
     Route: 048
     Dates: start: 20070614, end: 20150914

REACTIONS (4)
  - Cardiomyopathy [Unknown]
  - Septic shock [Fatal]
  - Neutrophil count decreased [Unknown]
  - Salmonella sepsis [Unknown]

NARRATIVE: CASE EVENT DATE: 20150915
